FAERS Safety Report 9210432 (Version 3)
Quarter: 2014Q2

REPORT INFORMATION
  Report Type: Spontaneous
  Country: JP (occurrence: JP)
  Receive Date: 20130404
  Receipt Date: 20140604
  Transmission Date: 20141212
  Serious: Yes (Hospitalization, Other)
  Sender: FDA-Public Use
  Company Number: JP-JNJFOC-20130319129

PATIENT
  Age: 86 Year
  Sex: Male

DRUGS (3)
  1. SIMPONI [Suspect]
     Indication: RHEUMATOID ARTHRITIS
     Route: 058
     Dates: start: 20130308, end: 20130308
  2. ISCOTIN [Suspect]
     Indication: PROPHYLAXIS
     Route: 065
     Dates: start: 20130206, end: 20130310
  3. METHOTREXATE [Suspect]
     Indication: RHEUMATOID ARTHRITIS
     Route: 048
     Dates: end: 20130310

REACTIONS (5)
  - Pancytopenia [Recovered/Resolved]
  - Bone marrow failure [Unknown]
  - Rash generalised [Recovered/Resolved]
  - Oropharyngeal pain [Unknown]
  - Buccal mucosal roughening [Unknown]
